FAERS Safety Report 7593620-7 (Version None)
Quarter: 2011Q3

REPORT INFORMATION
  Report Type: 
  Country: None (occurrence: None)
  Receive Date: 20110706
  Receipt Date: 20110626
  Transmission Date: 20111222
  Serious: Yes (Hospitalization)
  Sender: FDA-Public Use
  Company Number: TW-GENENTECH-318131

PATIENT
  Age: 34 Year
  Sex: Male

DRUGS (1)
  1. RITUXAN [Suspect]
     Indication: RHEUMATOID ARTHRITIS
     Dosage: 1000 MG, D1+15/Q6M
     Route: 042
     Dates: start: 20110410, end: 20110430

REACTIONS (4)
  - ACUTE RESPIRATORY DISTRESS SYNDROME [None]
  - RESPIRATORY FAILURE [None]
  - CYTOMEGALOVIRUS INFECTION [None]
  - PNEUMONIA [None]
